FAERS Safety Report 18515320 (Version 1)
Quarter: 2020Q4

REPORT INFORMATION
  Report Type: Other
  Country: PK (occurrence: PK)
  Receive Date: 20201118
  Receipt Date: 20201118
  Transmission Date: 20210114
  Serious: Yes (Other)
  Sender: FDA-Public Use
  Company Number: PK-ROCHE-2713040

PATIENT

DRUGS (1)
  1. CAPECITABINE. [Suspect]
     Active Substance: CAPECITABINE
     Indication: RECTAL NEOPLASM
     Route: 048

REACTIONS (2)
  - Wound dehiscence [Unknown]
  - Wound infection [Unknown]
